FAERS Safety Report 7283955-X (Version None)
Quarter: 2011Q1

REPORT INFORMATION
  Report Type: 
  Country: None (occurrence: None)
  Receive Date: 20110209
  Receipt Date: 20110131
  Transmission Date: 20110831
  Serious: Yes (Other)
  Sender: FDA-Public Use
  Company Number: PT-WATSON-2011-01339

PATIENT
  Age: 9 Year
  Sex: Male

DRUGS (1)
  1. PREDNISOLONE [Suspect]
     Indication: ARTHROPOD BITE
     Dosage: UNK
     Route: 042

REACTIONS (5)
  - HYPOTENSION [None]
  - TYPE I HYPERSENSITIVITY [None]
  - URTICARIA [None]
  - CONJUNCTIVITIS [None]
  - DYSPNOEA [None]
